FAERS Safety Report 10091322 (Version 2)
Quarter: 2014Q2

REPORT INFORMATION
  Report Type: Spontaneous
  Country: US (occurrence: US)
  Receive Date: 20140421
  Receipt Date: 20140421
  Transmission Date: 20141212
  Serious: No
  Sender: FDA-Public Use
  Company Number: US-GILEAD-2012-0062599

PATIENT
  Age: 78 Year
  Sex: Female

DRUGS (3)
  1. LETAIRIS [Suspect]
     Indication: PULMONARY HYPERTENSION
     Dosage: 5 MG, UNK
     Route: 048
     Dates: start: 20110610
  2. LETAIRIS [Suspect]
     Indication: SCLERODERMA
  3. TYVASO [Concomitant]

REACTIONS (5)
  - Upper respiratory tract infection [Unknown]
  - Productive cough [Unknown]
  - Sputum discoloured [Unknown]
  - Pyrexia [Unknown]
  - Nasopharyngitis [Unknown]
